FAERS Safety Report 12355737 (Version 2)
Quarter: 2016Q2

REPORT INFORMATION
  Report Type: Spontaneous
  Country: JP (occurrence: JP)
  Receive Date: 20160511
  Receipt Date: 20160617
  Transmission Date: 20160815
  Serious: Yes (Hospitalization, Other)
  Sender: FDA-Public Use
  Company Number: JP-GILEAD-2016-0212671AA

PATIENT
  Age: 67 Year
  Sex: Male
  Weight: 50.6 kg

DRUGS (12)
  1. URSODEOXYCHOL [Concomitant]
     Dosage: 300 MG, UNK
     Route: 048
  2. SOVALDI [Suspect]
     Active Substance: SOFOSBUVIR
     Dosage: 400 MG, UNK
     Route: 048
     Dates: start: 20160415, end: 20160420
  3. MICARDIS [Concomitant]
     Active Substance: TELMISARTAN
     Dosage: 40 MG, UNK
     Route: 048
  4. NEXIUM [Concomitant]
     Active Substance: ESOMEPRAZOLE MAGNESIUM
     Dosage: 20 MG, UNK
     Route: 048
  5. SOVALDI [Suspect]
     Active Substance: SOFOSBUVIR
     Indication: CHRONIC HEPATITIS C
     Dosage: 400 MG, UNK
     Route: 048
     Dates: start: 20160302, end: 20160413
  6. STROCAIN                           /00130301/ [Concomitant]
     Dosage: 30 MG, UNK
     Route: 048
  7. RIBAVIRIN. [Suspect]
     Active Substance: RIBAVIRIN
     Indication: CHRONIC HEPATITIS C
     Dosage: 600 MG, UNK
     Route: 048
     Dates: start: 20160302, end: 20160413
  8. RIBAVIRIN. [Suspect]
     Active Substance: RIBAVIRIN
     Dosage: 600 UNK, UNK
     Route: 048
     Dates: start: 20160415, end: 20160420
  9. SUCRALFATE. [Concomitant]
     Active Substance: SUCRALFATE
     Dosage: 90% 3G
     Route: 048
  10. TOSUFLOXACIN TOSILATE [Concomitant]
     Active Substance: TOSUFLOXACIN TOSYLATE
     Dosage: 450 MG, UNK
     Route: 048
  11. MIYA-BM [Concomitant]
     Active Substance: CLOSTRIDIUM BUTYRICUM SPORES STRAIN M-55
     Dosage: 3 DF, UNK
     Route: 048
  12. SCOPOLAMINE BUTYLBROMIDE [Concomitant]
     Active Substance: SCOPOLAMINE
     Dosage: 30 MG, UNK
     Route: 048

REACTIONS (2)
  - Mallory-Weiss syndrome [Unknown]
  - Aortic dissection [Not Recovered/Not Resolved]

NARRATIVE: CASE EVENT DATE: 201604
